FAERS Safety Report 8824649 (Version 5)
Quarter: 2015Q1

REPORT INFORMATION
  Report Type: Spontaneous
  Country: US (occurrence: US)
  Receive Date: 20121004
  Receipt Date: 20150113
  Transmission Date: 20150721
  Serious: Yes (Death, Hospitalization, Other)
  Sender: FDA-Public Use
  Company Number: US-SANOFI-AVENTIS-2012SA072286

PATIENT
  Age: 81 Year
  Sex: Female
  Weight: 82.1 kg

DRUGS (25)
  1. SOLU-MEDROL [Concomitant]
     Active Substance: METHYLPREDNISOLONE SODIUM SUCCINATE
     Route: 065
  2. VERSED [Concomitant]
     Active Substance: MIDAZOLAM HYDROCHLORIDE
     Route: 065
  3. CIPRO [Concomitant]
     Active Substance: CIPROFLOXACIN HYDROCHLORIDE
     Route: 048
  4. FUROSEMIDE. [Concomitant]
     Active Substance: FUROSEMIDE
     Route: 048
  5. DETROL [Concomitant]
     Active Substance: TOLTERODINE TARTRATE
     Route: 048
  6. METOPROLOL SUCCINATE. [Concomitant]
     Active Substance: METOPROLOL SUCCINATE
     Route: 048
  7. MULTAQ [Suspect]
     Active Substance: DRONEDARONE
     Indication: ATRIAL FIBRILLATION
     Route: 048
     Dates: start: 20100320
  8. BACTRIM [Concomitant]
     Active Substance: SULFAMETHOXAZOLE\TRIMETHOPRIM
  9. SULFAMETHOXAZOLE [Concomitant]
     Active Substance: SULFAMETHOXAZOLE
     Dosage: 800-160 MG
  10. MULTAQ [Suspect]
     Active Substance: DRONEDARONE
     Indication: ATRIAL FIBRILLATION
     Route: 048
  11. ALBUMIN [Concomitant]
     Active Substance: ALBUMIN (HUMAN)
     Route: 065
  12. RIFAXIMIN [Concomitant]
     Active Substance: RIFAXIMIN
     Route: 065
  13. CARDIZEM [Concomitant]
     Active Substance: DILTIAZEM HYDROCHLORIDE
     Route: 042
     Dates: start: 20100325
  14. KLOR-CON [Concomitant]
     Active Substance: POTASSIUM CHLORIDE
  15. ADVIL [Concomitant]
     Active Substance: IBUPROFEN
  16. LACTULOSE. [Concomitant]
     Active Substance: LACTULOSE
     Route: 065
  17. CALTRATE [Concomitant]
     Active Substance: CALCIUM CARBONATE
  18. I.V. SOLUTIONS [Concomitant]
  19. MYCOSTATIN [Concomitant]
     Active Substance: NYSTATIN
     Dosage: POWDER
     Route: 065
  20. CARDIZEM [Concomitant]
     Active Substance: DILTIAZEM HYDROCHLORIDE
     Route: 048
  21. FENTANYL. [Concomitant]
     Active Substance: FENTANYL
     Route: 065
  22. MORPHINE SULFATE. [Concomitant]
     Active Substance: MORPHINE SULFATE
     Route: 065
  23. COUMADIN [Concomitant]
     Active Substance: WARFARIN SODIUM
  24. LOVENOX [Concomitant]
     Active Substance: ENOXAPARIN SODIUM
  25. SYNTHROID [Concomitant]
     Active Substance: LEVOTHYROXINE SODIUM
     Route: 048

REACTIONS (34)
  - Hepatitis cholestatic [Fatal]
  - Nephrolithiasis [Unknown]
  - Depressed level of consciousness [Unknown]
  - Skin disorder [Unknown]
  - Agitation [Recovered/Resolved]
  - Peripheral swelling [Unknown]
  - Abdominal pain upper [Fatal]
  - Pancreatitis acute [Unknown]
  - Fungal infection [Unknown]
  - Diarrhoea [Unknown]
  - Jaundice [Fatal]
  - Oedema [Unknown]
  - Balance disorder [Unknown]
  - Acute hepatic failure [Fatal]
  - Hepatorenal syndrome [Fatal]
  - Mental status changes [Unknown]
  - Acute kidney injury [Unknown]
  - Blister [Recovered/Resolved]
  - Erythema [Unknown]
  - Hiatus hernia [Unknown]
  - Gait disturbance [Unknown]
  - Ascites [Fatal]
  - Hepatic cirrhosis [Unknown]
  - Hepatic neoplasm [Unknown]
  - Oedema peripheral [Unknown]
  - Cough [Unknown]
  - Mental disorder [Unknown]
  - Feeling abnormal [Unknown]
  - Blood bilirubin increased [Fatal]
  - Renal cyst [Unknown]
  - Hepatic encephalopathy [Unknown]
  - Chromaturia [Fatal]
  - Contusion [Unknown]
  - Diarrhoea [Unknown]

NARRATIVE: CASE EVENT DATE: 2010
